FAERS Safety Report 9063752 (Version 1)
Quarter: 2013Q1

REPORT INFORMATION
  Report Type: Report from Study
  Country: US (occurrence: US)
  Receive Date: 20130131
  Receipt Date: 20130131
  Transmission Date: 20140127
  Serious: Yes (Other)
  Sender: FDA-Public Use
  Company Number: US-ABBOTT-12P-163-0995755-00

PATIENT
  Age: 46 Year
  Sex: Female

DRUGS (4)
  1. HUMIRA [Suspect]
     Indication: RHEUMATOID ARTHRITIS
     Dates: end: 20121101
  2. ARAVA [Concomitant]
     Indication: PRODUCT USED FOR UNKNOWN INDICATION
     Dosage: 20 MG DAILY
     Dates: start: 201207, end: 201208
  3. ARAVA [Concomitant]
     Dosage: 10 MG DAILY
     Dates: start: 201208, end: 201209
  4. PREDNISONE [Concomitant]
     Indication: PRODUCT USED FOR UNKNOWN INDICATION
     Dosage: TAPERED
     Dates: end: 20120821

REACTIONS (15)
  - Uterine cancer [Not Recovered/Not Resolved]
  - Alopecia [Unknown]
  - Pruritus [Unknown]
  - Nausea [Unknown]
  - Weight increased [Unknown]
  - Oedema peripheral [Unknown]
  - Pain in extremity [Unknown]
  - Synovial cyst [Unknown]
  - Blood glucose increased [Unknown]
  - Blood cholesterol increased [Unknown]
  - Menorrhagia [Unknown]
  - Menstruation irregular [Unknown]
  - Cyst [Unknown]
  - Uterine leiomyoma [Unknown]
  - Local swelling [Unknown]
